FAERS Safety Report 15906766 (Version 1)
Quarter: 2019Q1

REPORT INFORMATION
  Report Type: Spontaneous
  Country: US (occurrence: US)
  Receive Date: 20190204
  Receipt Date: 20190204
  Transmission Date: 20190417
  Serious: Yes (Disabling)
  Sender: FDA-Public Use
  Company Number: None

PATIENT
  Age: 50 Year
  Sex: Female
  Weight: 60.75 kg

DRUGS (2)
  1. TRETINOIN. [Suspect]
     Active Substance: TRETINOIN
     Indication: SKIN DISCOLOURATION
     Dosage: ?          QUANTITY:1 CREAM;?
     Route: 061
     Dates: start: 20161231, end: 20190101
  2. TRETINOIN. [Suspect]
     Active Substance: TRETINOIN
     Indication: SKIN WRINKLING
     Dosage: ?          QUANTITY:1 CREAM;?
     Route: 061
     Dates: start: 20161231, end: 20190101

REACTIONS (1)
  - Alopecia [None]

NARRATIVE: CASE EVENT DATE: 20161230
